FAERS Safety Report 13829227 (Version 15)
Quarter: 2019Q2

REPORT INFORMATION
  Report Type: Spontaneous
  Country: US (occurrence: US)
  Receive Date: 20170803
  Receipt Date: 20190514
  Transmission Date: 20190711
  Serious: Yes (Death, Hospitalization, Other)
  Sender: FDA-Public Use
  Company Number: US-009507513-1708USA000688

PATIENT
  Age: 86 Year
  Sex: Female

DRUGS (11)
  1. PANTOPRAZOLE [Concomitant]
     Active Substance: PANTOPRAZOLE
  2. JANUVIA [Suspect]
     Active Substance: SITAGLIPTIN PHOSPHATE
     Indication: TYPE 2 DIABETES MELLITUS
     Dosage: 100 MG ONCE DAILY
     Route: 048
     Dates: start: 20170714, end: 20190320
  3. SIMVASTATIN. [Concomitant]
     Active Substance: SIMVASTATIN
  4. LISINOPRIL. [Concomitant]
     Active Substance: LISINOPRIL
  5. METOPROLOL TARTRATE. [Concomitant]
     Active Substance: METOPROLOL TARTRATE
  6. FUROSEMIDE. [Suspect]
     Active Substance: FUROSEMIDE
     Dosage: UNK
     Route: 042
     Dates: start: 201903
  7. WARFARIN [Concomitant]
     Active Substance: WARFARIN
  8. JANUVIA [Suspect]
     Active Substance: SITAGLIPTIN PHOSPHATE
     Dosage: 100 MG ONCE DAILY
     Route: 048
     Dates: start: 20170714, end: 20190320
  9. POTASSIUM CHLORIDE. [Suspect]
     Active Substance: POTASSIUM CHLORIDE
     Dosage: UNK
     Route: 042
     Dates: start: 2019
  10. METFORMIN [Suspect]
     Active Substance: METFORMIN HYDROCHLORIDE
  11. HYDROCHLOROTHIAZIDE. [Concomitant]
     Active Substance: HYDROCHLOROTHIAZIDE

REACTIONS (33)
  - Purulent discharge [Unknown]
  - General physical health deterioration [Not Recovered/Not Resolved]
  - Anal incontinence [Not Recovered/Not Resolved]
  - Blood pressure increased [Unknown]
  - Pruritus [Recovering/Resolving]
  - Colitis [Recovering/Resolving]
  - Hyperhidrosis [Unknown]
  - Abdominal pain upper [Unknown]
  - Cardiac failure congestive [Fatal]
  - Intestinal pseudo-obstruction [Unknown]
  - Head injury [Unknown]
  - Hypokalaemia [Unknown]
  - Urinary tract infection [Unknown]
  - Foreign body aspiration [Unknown]
  - Arthralgia [Unknown]
  - Cardiac amyloidosis [Unknown]
  - Dysphagia [Not Recovered/Not Resolved]
  - Irritable bowel syndrome [Not Recovered/Not Resolved]
  - Erythema [Recovering/Resolving]
  - Memory impairment [Unknown]
  - Pain [Unknown]
  - Muscular weakness [Unknown]
  - Abdominal rigidity [Unknown]
  - Pollakiuria [Unknown]
  - Gait disturbance [Unknown]
  - Paraesthesia [Not Recovered/Not Resolved]
  - Blood glucose increased [Not Recovered/Not Resolved]
  - Constipation [Unknown]
  - Skin abrasion [Unknown]
  - Bloody discharge [Unknown]
  - Skin lesion [Unknown]
  - Urinary incontinence [Not Recovered/Not Resolved]
  - Contusion [Unknown]

NARRATIVE: CASE EVENT DATE: 2017
